FAERS Safety Report 8001538-0 (Version None)
Quarter: 2011Q4

REPORT INFORMATION
  Report Type: 
  Country: None (occurrence: None)
  Receive Date: 20111222
  Receipt Date: 20111220
  Transmission Date: 20120403
  Serious: Yes (Other)
  Sender: FDA-Public Use
  Company Number: US-PFIZER INC-2011292819

PATIENT
  Sex: Female
  Weight: 106.58 kg

DRUGS (4)
  1. LIPITOR [Suspect]
     Indication: BLOOD CHOLESTEROL INCREASED
     Dosage: 40MG ONCE A DAY
     Route: 048
     Dates: start: 19970101, end: 20030101
  2. THEOPHYLLINE [Concomitant]
     Dosage: 300MG TWO TIMES A DAY
  3. JANUVIA [Concomitant]
     Indication: DIABETES MELLITUS
     Dosage: UNK
  4. LANTUS [Concomitant]
     Indication: DIABETES MELLITUS
     Dosage: UNK

REACTIONS (15)
  - APPARENT DEATH [None]
  - HEPATIC FAILURE [None]
  - LIMB DISCOMFORT [None]
  - RHABDOMYOLYSIS [None]
  - SYNCOPE [None]
  - CARDIAC FAILURE CONGESTIVE [None]
  - RENAL DISORDER [None]
  - BACK PAIN [None]
  - MUSCULOSKELETAL DISORDER [None]
  - MULTI-ORGAN FAILURE [None]
  - MUSCLE INJURY [None]
  - LUNG DISORDER [None]
  - RENAL FAILURE [None]
  - ABASIA [None]
  - MALAISE [None]
